FAERS Safety Report 4342052-3 (Version None)
Quarter: 2004Q2

REPORT INFORMATION
  Report Type: 
  Country: None (occurrence: None)
  Receive Date: 20040415
  Receipt Date: 20040402
  Transmission Date: 20050107
  Serious: Yes (Other)
  Sender: FDA-Public Use
  Company Number: 2004022105

PATIENT
  Age: 52 Year
  Sex: Female

DRUGS (6)
  1. TIKOSYN [Suspect]
     Indication: ATRIAL FIBRILLATION
     Dosage: 500 MCG (BID), ORAL
     Route: 048
     Dates: start: 20040319
  2. TIKOSYN [Suspect]
     Indication: TACHYCARDIA
     Dosage: 500 MCG (BID), ORAL
     Route: 048
     Dates: start: 20040319
  3. METOPROLOL (METOPROLOL) [Suspect]
     Indication: ILL-DEFINED DISORDER
     Dates: start: 20040319
  4. WARFARIN SODIUM [Concomitant]
  5. PROPAFENONE HCL [Concomitant]
  6. DILTIAZEM HYDROCHLORIDE [Concomitant]

REACTIONS (3)
  - ATRIAL FIBRILLATION [None]
  - TACHYCARDIA [None]
  - WEIGHT FLUCTUATION [None]
